FAERS Safety Report 9079586 (Version 1)
Quarter: 2013Q1

REPORT INFORMATION
  Report Type: Report from Study
  Country: US (occurrence: US)
  Receive Date: 20130130
  Receipt Date: 20130130
  Transmission Date: 20140127
  Serious: No
  Sender: FDA-Public Use
  Company Number: US-ABBOTT-12P-163-0963878-00

PATIENT
  Age: 42 None
  Sex: Female
  Weight: 77.18 kg

DRUGS (4)
  1. HUMIRA [Suspect]
     Indication: CROHN^S DISEASE
     Dosage: LOADING DOSE
     Dates: start: 201206, end: 201206
  2. HUMIRA [Suspect]
     Dosage: LOADING DOSE
  3. HUMIRA [Suspect]
  4. MULTIVITAMIN [Concomitant]
     Indication: VITAMIN SUPPLEMENTATION
     Dosage: DAILY

REACTIONS (6)
  - Malaise [Not Recovered/Not Resolved]
  - Injection site bruising [Recovering/Resolving]
  - Pyrexia [Not Recovered/Not Resolved]
  - Sinusitis [Unknown]
  - Injection site bruising [Not Recovered/Not Resolved]
  - Rash [Not Recovered/Not Resolved]
